FAERS Safety Report 21926816 (Version 1)
Quarter: 2023Q1

REPORT INFORMATION
  Report Type: Spontaneous
  Country: IT (occurrence: IT)
  Receive Date: 20230130
  Receipt Date: 20230130
  Transmission Date: 20230418
  Serious: Yes (Death)
  Sender: FDA-Public Use
  Company Number: IT-CHEPLA-2022012429

PATIENT
  Age: 57 Year
  Sex: Male
  Weight: 40 kg

DRUGS (9)
  1. PACLITAXEL [Suspect]
     Active Substance: PACLITAXEL
     Indication: Squamous cell carcinoma of head and neck
     Dosage: DAYS 1, 8, AND 15, PRIOR TO THE EVENT ONSET
     Route: 042
     Dates: start: 20220908
  2. PACLITAXEL [Suspect]
     Active Substance: PACLITAXEL
     Dosage: LATEST DOSE
     Route: 065
     Dates: start: 20221128
  3. DEXAMETHASONE [Concomitant]
     Active Substance: DEXAMETHASONE
     Dosage: ONGOING
     Route: 065
     Dates: start: 20220914
  4. RIVOTRIL [Concomitant]
     Active Substance: CLONAZEPAM
     Dosage: ONGOING
     Route: 065
     Dates: start: 20221014
  5. NEBIVOLOL HYDROCHLORIDE [Concomitant]
     Active Substance: NEBIVOLOL HYDROCHLORIDE
     Dosage: ONGOING
     Route: 065
     Dates: start: 20220901
  6. FENTICER [Concomitant]
     Dosage: ONGOING
     Route: 065
     Dates: start: 20221014
  7. LANSOPRAZOLE [Concomitant]
     Active Substance: LANSOPRAZOLE
     Dosage: ONGOING
     Route: 065
     Dates: start: 20220128
  8. DOXYCYCLINE HYDROCHLORIDE [Concomitant]
     Active Substance: DOXYCYCLINE HYDROCHLORIDE
     Dosage: ONGOING
     Route: 065
     Dates: start: 20221021
  9. LYRICA [Concomitant]
     Active Substance: PREGABALIN
     Dosage: ONGOING
     Route: 065
     Dates: start: 20220531

REACTIONS (2)
  - Oral cavity fistula [Fatal]
  - Product use in unapproved indication [Recovered/Resolved]

NARRATIVE: CASE EVENT DATE: 20220908
